FAERS Safety Report 4932333-4 (Version None)
Quarter: 2006Q1

REPORT INFORMATION
  Report Type: 
  Country: None (occurrence: None)
  Receive Date: 20060228
  Receipt Date: 20060214
  Transmission Date: 20060701
  Serious: Yes (Hospitalization)
  Sender: FDA-Public Use
  Company Number: 2006JP000317

PATIENT
  Age: 41 Year
  Sex: Female

DRUGS (4)
  1. TACROLIMUS CAPSULES(TACROLIMUS CAPSULES) CAPSULE [Suspect]
     Indication: RHEUMATOID ARTHRITIS
     Dosage: 1.5 MG/ D, ORAL
     Route: 048
     Dates: start: 20051214, end: 20051218
  2. PREDNISOLONE [Concomitant]
  3. ULGUT (BENEXATE HYDROCHLORIDE) CAPSULE [Concomitant]
  4. FAMOTIDINE [Concomitant]

REACTIONS (4)
  - MALAISE [None]
  - NAUSEA [None]
  - STOMACH DISCOMFORT [None]
  - VERTIGO POSITIONAL [None]
